FAERS Safety Report 6143820-8 (Version None)
Quarter: 2009Q2

REPORT INFORMATION
  Report Type: 
  Country: None (occurrence: None)
  Receive Date: 20090403
  Receipt Date: 20090401
  Transmission Date: 20091009
  Serious: Yes (Death)
  Sender: FDA-Public Use
  Company Number: PHHY2009JP02424

PATIENT
  Age: 39 Year
  Sex: Male

DRUGS (2)
  1. NEORAL [Suspect]
     Indication: CORD BLOOD TRANSPLANT THERAPY
     Dosage: UNK
  2. FLUDARABINE PHOSPHATE [Concomitant]
     Dosage: 30 MG/DAY

REACTIONS (2)
  - MULTI-ORGAN FAILURE [None]
  - SYSTEMIC CANDIDA [None]
